FAERS Safety Report 10871675 (Version 2)
Quarter: 2015Q1

REPORT INFORMATION
  Report Type: Spontaneous
  Country: JP (occurrence: JP)
  Receive Date: 20150226
  Receipt Date: 20150306
  Transmission Date: 20150721
  Serious: Yes (Hospitalization)
  Sender: FDA-Public Use
  Company Number: JP-PFIZER INC-2015068983

PATIENT
  Age: 76 Year
  Sex: Female

DRUGS (4)
  1. FOSPHENYTOIN SODIUM. [Suspect]
     Active Substance: FOSPHENYTOIN SODIUM
     Indication: CRANIOTOMY
     Dosage: 1200 MG, 1X/DAY
     Route: 042
     Dates: start: 20141226, end: 20141226
  2. ALABEL [Suspect]
     Active Substance: AMINOLEVULINIC ACID HYDROCHLORIDE
     Indication: CRANIOTOMY
     Dosage: 1320 MG, 1X/DAY
     Route: 048
     Dates: start: 20141226
  3. DEXART [Concomitant]
     Active Substance: DEXAMETHASONE SODIUM PHOSPHATE
     Indication: CRANIOTOMY
     Dosage: 1.65 MG, 1X/DAY
     Route: 042
     Dates: start: 20141226
  4. GASTER [Concomitant]
     Active Substance: FAMOTIDINE
     Indication: CRANIOTOMY
     Dosage: 20 MG, 1X/DAY
     Route: 042
     Dates: start: 20141226

REACTIONS (1)
  - Respiratory disorder [Recovered/Resolved]

NARRATIVE: CASE EVENT DATE: 20141226
